FAERS Safety Report 21745484 (Version 1)
Quarter: 2022Q4

REPORT INFORMATION
  Report Type: Spontaneous
  Country: US (occurrence: US)
  Receive Date: 20221219
  Receipt Date: 20221219
  Transmission Date: 20230112
  Serious: Yes (Other)
  Sender: FDA-Public Use
  Company Number: US-UROGEN PHARMA LTD.-2022-UGN-000143

PATIENT

DRUGS (1)
  1. JELMYTO [Suspect]
     Active Substance: MITOMYCIN
     Indication: Product used for unknown indication
     Dosage: UNK (INSTILLATION) 1 TIME PER WEEK
     Route: 065
     Dates: start: 20221018, end: 20221018

REACTIONS (2)
  - Pseudomonas infection [Unknown]
  - Flank pain [Recovered/Resolved]

NARRATIVE: CASE EVENT DATE: 20220101
